FAERS Safety Report 5121086-5 (Version None)
Quarter: 2006Q4

REPORT INFORMATION
  Report Type: 
  Country: None (occurrence: None)
  Receive Date: 20061005
  Receipt Date: 20060428
  Transmission Date: 20070319
  Serious: Yes (Hospitalization)
  Sender: FDA-Public Use
  Company Number: IE-BRISTOL-MYERS SQUIBB COMPANY-13359567

PATIENT
  Age: 64 Year
  Sex: Female

DRUGS (4)
  1. CAPECITABINE [Suspect]
     Indication: BREAST CANCER
     Route: 048
     Dates: start: 20060410, end: 20060424
  2. ZOMETA [Concomitant]
     Dates: start: 20060403
  3. XANAX [Concomitant]
  4. VALIUM [Concomitant]

REACTIONS (3)
  - GASTROENTERITIS NORWALK VIRUS [None]
  - NEUTROPENIA [None]
  - THROMBOCYTOPENIA [None]
